FAERS Safety Report 12901548 (Version 1)
Quarter: 2016Q4

REPORT INFORMATION
  Report Type: Spontaneous
  Country: US (occurrence: US)
  Receive Date: 20161102
  Receipt Date: 20161102
  Transmission Date: 20170207
  Serious: Yes (Hospitalization)
  Sender: FDA-Public Use
  Company Number: US-ROCHE-1847265

PATIENT
  Age: 78 Year
  Sex: Male

DRUGS (6)
  1. PEMETREXED [Concomitant]
     Active Substance: PEMETREXED
     Dosage: X6 CYCLES
     Route: 065
     Dates: start: 201308, end: 201311
  2. PEMETREXED [Concomitant]
     Active Substance: PEMETREXED
     Route: 065
     Dates: start: 20120509, end: 201212
  3. AVASTIN [Suspect]
     Active Substance: BEVACIZUMAB
     Indication: LUNG NEOPLASM MALIGNANT
     Route: 065
     Dates: start: 201303, end: 201305
  4. CRIZOTINIB [Suspect]
     Active Substance: CRIZOTINIB
     Indication: LUNG NEOPLASM MALIGNANT
     Route: 065
     Dates: start: 20150103, end: 201608
  5. DOCETAXEL. [Concomitant]
     Active Substance: DOCETAXEL
     Dosage: X 5
     Route: 065
     Dates: start: 201303, end: 201305
  6. PEMETREXED [Concomitant]
     Active Substance: PEMETREXED
     Dosage: WAS TREATED ON/OFF DUE TO RENAL INSUFFICIENCY
     Route: 065
     Dates: start: 201003, end: 201010

REACTIONS (1)
  - Pleural effusion [Unknown]
